FAERS Safety Report 25808303 (Version 1)
Quarter: 2025Q3

REPORT INFORMATION
  Report Type: Spontaneous
  Country: EU (occurrence: EU)
  Receive Date: 20250916
  Receipt Date: 20250916
  Transmission Date: 20251021
  Serious: Yes (Life-Threatening, Other)
  Sender: MYLAN
  Company Number: None

PATIENT
  Age: 69 Year
  Sex: Female

DRUGS (4)
  1. ALPRAZOLAM [Suspect]
     Active Substance: ALPRAZOLAM
     Indication: Product used for unknown indication
  2. ALPRAZOLAM [Suspect]
     Active Substance: ALPRAZOLAM
     Route: 048
  3. ALPRAZOLAM [Suspect]
     Active Substance: ALPRAZOLAM
     Route: 048
  4. ALPRAZOLAM [Suspect]
     Active Substance: ALPRAZOLAM

REACTIONS (4)
  - Altered state of consciousness [Recovering/Resolving]
  - Hypothermia [Recovering/Resolving]
  - Respiratory disorder [Recovering/Resolving]
  - Suspected suicide attempt [Unknown]
